FAERS Safety Report 10395933 (Version 3)
Quarter: 2014Q1

REPORT INFORMATION
  Report Type: Spontaneous
  Country: US (occurrence: None)
  Receive Date: 20130107
  Receipt Date: 20130524
  Transmission Date: 20141002
  Serious: No
  Sender: FDA-Public Use
  Company Number: PHEH2012US015071

PATIENT
  Age: 30 Year
  Sex: Female
  Weight: 56.7 kg

DRUGS (3)
  1. GILENYA (FTY) CAPSULE, 0.5MG [Suspect]
     Dosage: 1 DF, QD, ORAL
     Route: 048
  2. VITAMIN D (ERGOCALCIFEROL) CAPSULE [Concomitant]
  3. NORETHINDRONE (NORETHISTERONE) TABLET [Concomitant]

REACTIONS (6)
  - Fatigue [None]
  - Constipation [None]
  - Hypoaesthesia [None]
  - Disturbance in attention [None]
  - Diarrhoea [None]
  - Dizziness [None]
